FAERS Safety Report 8575663-X (Version None)
Quarter: 2012Q3

REPORT INFORMATION
  Report Type: 
  Country: None (occurrence: None)
  Receive Date: 20120807
  Receipt Date: 20120803
  Transmission Date: 20120928
  Serious: Yes (Other)
  Sender: FDA-Public Use
  Company Number: PHEH2011US00467

PATIENT
  Sex: Female

DRUGS (11)
  1. VICODIN [Concomitant]
  2. OXYCODONE HCL [Concomitant]
  3. CELEXA [Concomitant]
  4. REVLIMID [Concomitant]
     Dosage: 5 MG, QD
     Route: 048
  5. PRAVASTATIN [Concomitant]
  6. FLOMAX [Concomitant]
  7. ZOMETA [Suspect]
     Dosage: 4 MG, QMO
  8. OXYCONTIN [Concomitant]
  9. EFFEXOR [Concomitant]
  10. METFORMIN HYDROCHLORIDE [Concomitant]
  11. OMEPRAZOLE [Concomitant]
     Dosage: 20 MG, QD
     Route: 048

REACTIONS (78)
  - DYSPNOEA [None]
  - PRODUCTIVE COUGH [None]
  - EYE PAIN [None]
  - MULTIPLE MYELOMA [None]
  - ANGIOPLASTY [None]
  - HEPATITIS [None]
  - GASTROOESOPHAGEAL REFLUX DISEASE [None]
  - COMPRESSION FRACTURE [None]
  - DIABETES MELLITUS [None]
  - RHEUMATOID ARTHRITIS [None]
  - FLANK PAIN [None]
  - MICTURITION URGENCY [None]
  - RETINAL DEGENERATION [None]
  - HORDEOLUM [None]
  - MYOCARDIAL INFARCTION [None]
  - BRONCHITIS [None]
  - INCONTINENCE [None]
  - STRESS [None]
  - CHRONIC SINUSITIS [None]
  - ABDOMINAL PAIN [None]
  - URGE INCONTINENCE [None]
  - STRESS URINARY INCONTINENCE [None]
  - PLEURAL EFFUSION [None]
  - TYPE 2 DIABETES MELLITUS [None]
  - LABORATORY TEST [None]
  - OSTEONECROSIS OF JAW [None]
  - PAIN [None]
  - EMOTIONAL DISTRESS [None]
  - RENAL CYST [None]
  - CONSTIPATION [None]
  - DRUG HYPERSENSITIVITY [None]
  - CAESAREAN SECTION [None]
  - URINARY RETENTION [None]
  - ASPIRATION BONE MARROW [None]
  - BACTERAEMIA [None]
  - RENAL FAILURE ACUTE [None]
  - MUCOSAL INFLAMMATION [None]
  - ATELECTASIS [None]
  - MUSCLE SPASTICITY [None]
  - TONSILLECTOMY [None]
  - BONE NEOPLASM MALIGNANT [None]
  - MYOPIA [None]
  - PRESBYOPIA [None]
  - BONE LESION [None]
  - HYPERTENSION [None]
  - HIATUS HERNIA [None]
  - OSTEOMYELITIS [None]
  - COUGH [None]
  - GASTROINTESTINAL HAEMORRHAGE [None]
  - HAEMORRHOIDS [None]
  - RED BLOOD CELL SEDIMENTATION RATE INCREASED [None]
  - BARTHOLIN'S CYST [None]
  - FRACTURE [None]
  - MENORRHAGIA [None]
  - HYPERLIPIDAEMIA [None]
  - THROMBOCYTOPENIA [None]
  - IRON DEFICIENCY ANAEMIA [None]
  - ANXIETY [None]
  - RHINITIS ALLERGIC [None]
  - DIVERTICULUM [None]
  - ERYTHEMA [None]
  - DEPRESSION [None]
  - OSTEOARTHRITIS [None]
  - DYSURIA [None]
  - COLITIS [None]
  - INFECTION [None]
  - CHRONIC GASTROINTESTINAL BLEEDING [None]
  - OVARIAN CYST [None]
  - ARTHROPATHY [None]
  - FEMALE STERILISATION [None]
  - ASTIGMATISM [None]
  - PATHOLOGICAL FRACTURE [None]
  - INSOMNIA [None]
  - HYPOKALAEMIA [None]
  - NEUTROPENIA [None]
  - UPPER RESPIRATORY TRACT INFECTION [None]
  - CROHN'S DISEASE [None]
  - SURGERY [None]
